FAERS Safety Report 4700452-3 (Version None)
Quarter: 2005Q2

REPORT INFORMATION
  Report Type: 
  Country: None (occurrence: None)
  Receive Date: 20050624
  Receipt Date: 20050615
  Transmission Date: 20051028
  Serious: Yes (Other)
  Sender: FDA-Public Use
  Company Number: HQWYE483515JUN05

PATIENT
  Age: 56 Year
  Sex: Male

DRUGS (4)
  1. RAPAMUNE [Suspect]
     Indication: PROPHYLAXIS AGAINST TRANSPLANT REJECTION
     Dosage: 2 MG 1X PER 1 DAY, ORAL
     Route: 048
     Dates: start: 20040807, end: 20050531
  2. PREDNISONE [Concomitant]
  3. SIMVASTATIN [Concomitant]
  4. BACTRIM [Concomitant]

REACTIONS (4)
  - GLOMERULOSCLEROSIS [None]
  - NEPHROPATHY [None]
  - PROTEIN TOTAL DECREASED [None]
  - RENAL IMPAIRMENT [None]
